FAERS Safety Report 15374367 (Version 1)
Quarter: 2018Q3

REPORT INFORMATION
  Report Type: Spontaneous
  Country: US (occurrence: US)
  Receive Date: 20180912
  Receipt Date: 20180912
  Transmission Date: 20181010
  Serious: No
  Sender: FDA-Public Use
  Company Number: US-UNICHEM PHARMACEUTICALS (USA) INC-UCM201806-000154

PATIENT

DRUGS (3)
  1. CLONIDINE HCL [Suspect]
     Active Substance: CLONIDINE HYDROCHLORIDE
  2. TIZANIDINE. [Suspect]
     Active Substance: TIZANIDINE
  3. TORADOL [Suspect]
     Active Substance: KETOROLAC TROMETHAMINE

REACTIONS (2)
  - Muscular weakness [Not Recovered/Not Resolved]
  - Drug interaction [Unknown]
